FAERS Safety Report 4319398-8 (Version None)
Quarter: 2004Q1

REPORT INFORMATION
  Report Type: 
  Country: None (occurrence: None)
  Receive Date: 20040318
  Receipt Date: 20040318
  Transmission Date: 20041129
  Serious: Yes (Hospitalization)
  Sender: FDA-Public Use
  Company Number: None

PATIENT
  Age: 85 Year
  Sex: Male
  Weight: 65.7716 kg

DRUGS (2)
  1. NAMENDA [Suspect]
     Indication: DEMENTIA ALZHEIMER'S TYPE
     Dosage: Q DAY ORAL/PO
     Route: 048
     Dates: start: 20040128, end: 20040228
  2. REMINYL [Suspect]
     Indication: PAIN
     Dosage: 2 TABS ORAL/PO
     Route: 048
     Dates: start: 20040128, end: 20040228

REACTIONS (1)
  - CONVULSION [None]
